FAERS Safety Report 24409667 (Version 3)
Quarter: 2024Q4

REPORT INFORMATION
  Report Type: Report from Study
  Country: CA (occurrence: CA)
  Receive Date: 20241008
  Receipt Date: 20241028
  Transmission Date: 20250115
  Serious: Yes (Other)
  Sender: ROCHE
  Company Number: CA-002147023-NVSC2024CA020599

PATIENT
  Age: 43 Year
  Sex: Female

DRUGS (5)
  1. XOLAIR [Suspect]
     Active Substance: OMALIZUMAB
     Indication: Chronic spontaneous urticaria
     Dosage: 300 MG, 4 WEEKS
     Route: 050
     Dates: start: 20240126
  2. INDACATEROL ACETATE\MOMETASONE FUROATE [Suspect]
     Active Substance: INDACATEROL ACETATE\MOMETASONE FUROATE
     Indication: Product used for unknown indication
     Dosage: UNK
     Route: 065
  3. FAMOTIDINE [Concomitant]
     Active Substance: FAMOTIDINE
     Indication: Product used for unknown indication
     Dosage: UNK
     Route: 065
  4. DIPHENHYDRAMINE [Concomitant]
     Active Substance: DIPHENHYDRAMINE
     Indication: Product used for unknown indication
     Dosage: UNK
     Route: 065
  5. EPINEPHRINE [Concomitant]
     Active Substance: EPINEPHRINE
     Indication: Product used for unknown indication
     Dosage: UNK
     Route: 065

REACTIONS (17)
  - Angioedema [Unknown]
  - Anaphylactic reaction [Unknown]
  - Pruritus [Unknown]
  - Swelling [Unknown]
  - Asthma [Unknown]
  - Forced expiratory volume abnormal [Unknown]
  - Dyspnoea [Unknown]
  - Wheezing [Unknown]
  - Incision site erythema [Unknown]
  - Incision site pruritus [Unknown]
  - Joint swelling [Unknown]
  - Tooth abscess [Unknown]
  - Feeling jittery [Unknown]
  - Peripheral swelling [Unknown]
  - Tremor [Unknown]
  - Weight increased [Unknown]
  - Urticaria [Unknown]

NARRATIVE: CASE EVENT DATE: 20240926
